FAERS Safety Report 15878872 (Version 1)
Quarter: 2019Q1

REPORT INFORMATION
  Report Type: Spontaneous
  Country: IT (occurrence: IT)
  Receive Date: 20190128
  Receipt Date: 20190128
  Transmission Date: 20190417
  Serious: Yes (Hospitalization)
  Sender: FDA-Public Use
  Company Number: IT-SA-2018SA294879

PATIENT
  Age: 50 Year
  Sex: Male

DRUGS (1)
  1. TAMSULOSIN HYDROCHLORIDE. [Suspect]
     Active Substance: TAMSULOSIN HYDROCHLORIDE
     Indication: MEDICATION ERROR
     Dosage: 1.2 MG, TOTAL
     Route: 048
     Dates: start: 20181015, end: 20181015

REACTIONS (2)
  - Abdominal pain [Recovering/Resolving]
  - Medication error [Unknown]
